FAERS Safety Report 13127491 (Version 2)
Quarter: 2017Q2

REPORT INFORMATION
  Report Type: Spontaneous
  Country: US (occurrence: US)
  Receive Date: 20170118
  Receipt Date: 20170403
  Transmission Date: 20170830
  Serious: No
  Sender: FDA-Public Use
  Company Number: US-BAYER-2017-007849

PATIENT
  Age: 44 Year
  Sex: Female

DRUGS (1)
  1. MIRENA [Suspect]
     Active Substance: LEVONORGESTREL
     Dosage: 20 MCG/24HR, CONT
     Route: 015
     Dates: start: 20161222, end: 20161222

REACTIONS (3)
  - Complication of device insertion [None]
  - Device use issue [None]
  - Device malfunction [None]

NARRATIVE: CASE EVENT DATE: 20161222
